FAERS Safety Report 19503092 (Version 1)
Quarter: 2021Q3

REPORT INFORMATION
  Report Type: Spontaneous
  Country: GB (occurrence: GB)
  Receive Date: 20210708
  Receipt Date: 20210708
  Transmission Date: 20211014
  Serious: Yes (Other)
  Sender: FDA-Public Use
  Company Number: GB-JNJFOC-20210702300

PATIENT
  Age: 42 Year
  Sex: Male

DRUGS (4)
  1. IMRALDI [Suspect]
     Active Substance: ADALIMUMAB
     Dosage: WEEK 0
     Route: 058
  2. REMICADE [Suspect]
     Active Substance: INFLIXIMAB
     Indication: PRODUCT USED FOR UNKNOWN INDICATION
     Dosage: UNKNOWN
     Route: 042
  3. IMRALDI [Suspect]
     Active Substance: ADALIMUMAB
     Indication: CROHN^S DISEASE
     Route: 058
  4. IMRALDI [Suspect]
     Active Substance: ADALIMUMAB
     Dosage: FORTNIGHTLY
     Route: 058

REACTIONS (13)
  - Mood swings [Unknown]
  - Intestinal perforation [Unknown]
  - Pollakiuria [Unknown]
  - Crohn^s disease [Unknown]
  - Pain [Unknown]
  - Dyslexia [Unknown]
  - Anaphylactic reaction [Unknown]
  - Mobility decreased [Unknown]
  - Liver function test increased [Unknown]
  - Increased appetite [Unknown]
  - Sleep disorder [Unknown]
  - Facial pain [Unknown]
  - Dizziness [Unknown]
